FAERS Safety Report 9949704 (Version 1)
Quarter: 2014Q1

REPORT INFORMATION
  Report Type: Spontaneous
  Country: US (occurrence: US)
  Receive Date: 20140304
  Receipt Date: 20140304
  Transmission Date: 20141002
  Serious: No
  Sender: FDA-Public Use
  Company Number: US-ABBVIE-13P-163-1070087-00

PATIENT
  Age: 29 Year
  Sex: Female
  Weight: 118.04 kg

DRUGS (1)
  1. HUMIRA [Suspect]
     Indication: PSORIASIS
     Dates: start: 201210

REACTIONS (3)
  - Drug dose omission [Unknown]
  - Injection site pain [Recovered/Resolved]
  - Drug effect decreased [Not Recovered/Not Resolved]
